FAERS Safety Report 6631468-8 (Version None)
Quarter: 2010Q1

REPORT INFORMATION
  Report Type: 
  Country: None (occurrence: None)
  Receive Date: 20100312
  Receipt Date: 20100305
  Transmission Date: 20100710
  Serious: Yes (Death, Other)
  Sender: FDA-Public Use
  Company Number: US-BRISTOL-MYERS SQUIBB COMPANY-14985410

PATIENT
  Age: 61 Year
  Sex: Male

DRUGS (3)
  1. ERBITUX [Suspect]
     Indication: TONGUE NEOPLASM MALIGNANT STAGE UNSPECIFIED
     Dosage: BATCH NO. 09C00015A, EXP.DATE:28FEB2012
     Route: 042
     Dates: end: 20091101
  2. CISPLATIN [Suspect]
     Indication: TONGUE NEOPLASM MALIGNANT STAGE UNSPECIFIED
     Dosage: CYCLE 2 04-AUG-09, C3 08-SEP-09, C4 29-SEP-09.
     Dates: start: 20090714
  3. TAXOTERE [Suspect]
     Indication: TONGUE NEOPLASM MALIGNANT STAGE UNSPECIFIED
     Dosage: C2 04-AUG-09, C3 08-SEP-09, C4 29-SEP-09.
     Dates: start: 20090714

REACTIONS (4)
  - HAEMOPTYSIS [None]
  - MALIGNANT NEOPLASM PROGRESSION [None]
  - RASH [None]
  - THROMBOCYTOPENIA [None]
